FAERS Safety Report 6660611-X (Version None)
Quarter: 2010Q1

REPORT INFORMATION
  Report Type: 
  Country: None (occurrence: None)
  Receive Date: 20100331
  Receipt Date: 20100322
  Transmission Date: 20100710
  Serious: Yes (Other)
  Sender: FDA-Public Use
  Company Number: FR-WYE-G05802710

PATIENT
  Age: 2 Year
  Sex: Female

DRUGS (5)
  1. EFFEXOR [Suspect]
     Route: 064
     Dates: start: 20030101, end: 20070501
  2. EFFEXOR [Suspect]
     Route: 064
     Dates: start: 20070101, end: 20071101
  3. TERCIAN [Concomitant]
     Route: 064
     Dates: start: 20030101, end: 20071101
  4. LYSANXIA [Concomitant]
     Route: 064
     Dates: start: 20030101, end: 20071101
  5. EFFEXOR [Suspect]
     Route: 064
     Dates: start: 20070501, end: 20070101

REACTIONS (1)
  - AUTISM [None]
